FAERS Safety Report 4486504-4 (Version None)
Quarter: 2004Q4

REPORT INFORMATION
  Report Type: 
  Country: None (occurrence: None)
  Receive Date: 20041021
  Receipt Date: 20041008
  Transmission Date: 20050328
  Serious: Yes (Death, Hospitalization)
  Sender: FDA-Public Use
  Company Number: 2004238366CA

PATIENT
  Age: 82 Year
  Sex: Male

DRUGS (5)
  1. CELEBREX [Suspect]
     Indication: BACK PAIN
     Dosage: 100 MG, QD, ORAL
     Route: 048
     Dates: start: 20040701, end: 20040701
  2. METOPROLOL TARTRATE [Concomitant]
  3. ENALAPRIL MALEATE [Concomitant]
  4. HYDROCHLOROTHIAZIDE [Concomitant]
  5. ACETYLSALICYLIC ACID [Concomitant]

REACTIONS (5)
  - ANOREXIA [None]
  - CIRCULATORY COLLAPSE [None]
  - FATIGUE [None]
  - MALAISE [None]
  - PULMONARY THROMBOSIS [None]
